FAERS Safety Report 12082792 (Version 1)
Quarter: 2016Q1

REPORT INFORMATION
  Report Type: Spontaneous
  Country: US (occurrence: None)
  Receive Date: 20160216
  Receipt Date: 20160216
  Transmission Date: 20160526
  Serious: Yes (Other)
  Sender: FDA-Public Use
  Company Number: None

PATIENT
  Age: 39 Year
  Sex: Female
  Weight: 89.81 kg

DRUGS (3)
  1. AZOR [Concomitant]
     Active Substance: AMLODIPINE BESYLATE\OLMESARTAN MEDOXOMIL
  2. LUNESTA [Suspect]
     Active Substance: ESZOPICLONE
     Indication: SLEEP DISORDER
     Dosage: 30 PILLS, AT BEDTIME, TAKEN BY MOUTH
     Route: 048
  3. SEASONIQUE [Concomitant]
     Active Substance: ETHINYL ESTRADIOL\LEVONORGESTREL

REACTIONS (3)
  - Product substitution issue [None]
  - Initial insomnia [None]
  - Drug ineffective [None]

NARRATIVE: CASE EVENT DATE: 20160201
